FAERS Safety Report 7570482-5 (Version None)
Quarter: 2011Q2

REPORT INFORMATION
  Report Type: 
  Country: None (occurrence: None)
  Receive Date: 20110624
  Receipt Date: 20110311
  Transmission Date: 20111010
  Serious: No
  Sender: FDA-Public Use
  Company Number: US-ALLERGAN-1103521US

PATIENT
  Age: 49 Year
  Sex: Female

DRUGS (1)
  1. LATISSE [Suspect]
     Indication: GROWTH OF EYELASHES
     Dosage: UNK
     Route: 061
     Dates: start: 20110217

REACTIONS (4)
  - OCULAR HYPERAEMIA [None]
  - EYELID OEDEMA [None]
  - EYELID EXFOLIATION [None]
  - EYELIDS PRURITUS [None]
